FAERS Safety Report 8460651-4 (Version None)
Quarter: 2012Q2

REPORT INFORMATION
  Report Type: 
  Country: None (occurrence: None)
  Receive Date: 20120622
  Receipt Date: 20120612
  Transmission Date: 20120825
  Serious: Yes (Death, Hospitalization, Other)
  Sender: FDA-Public Use
  Company Number: AU-ROCHE-1060522

PATIENT
  Sex: Male

DRUGS (3)
  1. VEMURAFENIB [Suspect]
     Route: 048
     Dates: start: 20111001, end: 20111007
  2. VEMURAFENIB [Suspect]
     Route: 048
     Dates: start: 20111007, end: 20111014
  3. VEMURAFENIB [Suspect]
     Indication: METASTATIC MALIGNANT MELANOMA
     Route: 048
     Dates: start: 20110915, end: 20110920

REACTIONS (7)
  - ANAEMIA [None]
  - DIARRHOEA [None]
  - FATIGUE [None]
  - WEIGHT DECREASED [None]
  - SEPSIS [None]
  - DYSPHAGIA [None]
  - METASTATIC MALIGNANT MELANOMA [None]
